FAERS Safety Report 13935874 (Version 3)
Quarter: 2019Q3

REPORT INFORMATION
  Report Type: Spontaneous
  Country: US (occurrence: US)
  Receive Date: 20170905
  Receipt Date: 20190822
  Transmission Date: 20191004
  Serious: Yes (Other)
  Sender: FDA-Public Use
  Company Number: US-VERTEX PHARMACEUTICALS-2017-004793

PATIENT
  Age: 17 Year
  Sex: Male

DRUGS (21)
  1. ORKAMBI [Suspect]
     Active Substance: IVACAFTOR\LUMACAFTOR
     Dosage: 2 DOSAGE FORM (200/125 MG EACH), BID
     Route: 048
     Dates: end: 201906
  2. PANCRELIPASE. [Concomitant]
     Active Substance: PANCRELIPASE
     Dosage: 5 DOSAGE FORMS WITH MEALS 2-3 DOSAGE FORMS WITH SNACKS AND 3 WITH PROTEIN DRINK
     Route: 048
  3. ZOSYN [Concomitant]
     Active Substance: PIPERACILLIN SODIUM\TAZOBACTAM SODIUM
  4. URSODIOL. [Concomitant]
     Active Substance: URSODIOL
     Dosage: 300 MG WITH MEALS AND SNACKS,  BID
     Route: 048
  5. ORKAMBI [Suspect]
     Active Substance: IVACAFTOR\LUMACAFTOR
     Indication: CYSTIC FIBROSIS
     Dosage: 2 DOSAGE FORM (200/125 MG EACH), BID
     Route: 048
     Dates: start: 201510, end: 201702
  6. CALCIUM CARBONATE. [Concomitant]
     Active Substance: CALCIUM CARBONATE
     Dosage: 1 DOSAGE FORM, TID
     Route: 048
  7. CIPROFLOXACIN. [Concomitant]
     Active Substance: CIPROFLOXACIN
     Dosage: 1 DOSAGE FORM, 500 MG, BID
     Route: 048
  8. LEVOCETIRIZINE [Concomitant]
     Active Substance: LEVOCETIRIZINE
     Dosage: 1 DOSAGE FORM, 5 MG, QD
     Route: 048
  9. ONDANSETRON ODT DRLA [Concomitant]
     Active Substance: ONDANSETRON
     Indication: VOMITING
  10. TOBRAMYCIN. [Concomitant]
     Active Substance: TOBRAMYCIN
  11. ALBUTEROL SULFATE. [Concomitant]
     Active Substance: ALBUTEROL SULFATE
     Indication: COUGH
     Dosage: 2.5 MG, TID
     Route: 055
  12. ESOMEPRAZOLE. [Concomitant]
     Active Substance: ESOMEPRAZOLE MAGNESIUM
     Dosage: 1 DOSAGE FORM, 40 MILLIGRAM, QD
     Route: 048
  13. ONDANSETRON ODT DRLA [Concomitant]
     Active Substance: ONDANSETRON
     Indication: NAUSEA
     Dosage: 1 DOSAGE FORM, 4MG, TID
     Route: 048
  14. CAYSTON [Concomitant]
     Active Substance: AZTREONAM
  15. ALBUTEROL SULFATE. [Concomitant]
     Active Substance: ALBUTEROL SULFATE
     Indication: WHEEZING
     Dosage: 1 VIAL, 2.5 MG, BID
     Route: 055
  16. CYPROHEPTADINE. [Concomitant]
     Active Substance: CYPROHEPTADINE
     Dosage: 4 MG, TID
     Route: 048
  17. ALBUTEROL HFA [Concomitant]
     Active Substance: ALBUTEROL SULFATE
     Indication: WHEEZING
  18. ALBUTEROL SULFATE. [Concomitant]
     Active Substance: ALBUTEROL SULFATE
     Indication: DYSPNOEA
  19. ALBUTEROL HFA [Concomitant]
     Active Substance: ALBUTEROL SULFATE
     Indication: COUGH
     Dosage: 2-4 PUFFS, PRN
     Route: 055
  20. DORNASE ALFA. [Concomitant]
     Active Substance: DORNASE ALFA
     Dosage: 2.5 MILLILITER, QD
     Route: 055
  21. FLUTICASONE PROPIONATE. [Concomitant]
     Active Substance: FLUTICASONE PROPIONATE
     Dosage: 50MCG, 1 SPRAY INTO EACH NOSTRIL, QD
     Route: 045

REACTIONS (5)
  - Lower respiratory tract infection [Unknown]
  - Blood alkaline phosphatase increased [Recovering/Resolving]
  - Hepatic cirrhosis [Recovered/Resolved]
  - Alanine aminotransferase increased [Recovering/Resolving]
  - Aspartate aminotransferase increased [Recovering/Resolving]

NARRATIVE: CASE EVENT DATE: 201512
